FAERS Safety Report 9799047 (Version 3)
Quarter: 2015Q3

REPORT INFORMATION
  Report Type: Spontaneous
  Country: US (occurrence: US)
  Receive Date: 20140106
  Receipt Date: 20150806
  Transmission Date: 20151125
  Serious: No
  Sender: FDA-Public Use
  Company Number: US-GILEAD-2010-0032330

PATIENT
  Age: 79 Year
  Sex: Female
  Weight: 53.07 kg

DRUGS (30)
  1. COZAAR [Concomitant]
     Active Substance: LOSARTAN POTASSIUM
  2. ASPIRIN. [Concomitant]
     Active Substance: ASPIRIN
  3. BONIVA [Concomitant]
     Active Substance: IBANDRONATE SODIUM
  4. XYZAL [Concomitant]
     Active Substance: LEVOCETIRIZINE DIHYDROCHLORIDE
  5. FERROUS SULFATE [Concomitant]
     Active Substance: FERROUS SULFATE\FERROUS SULFATE, DRIED
  6. CALCIUM [Concomitant]
     Active Substance: CALCIUM
  7. LETAIRIS [Suspect]
     Active Substance: AMBRISENTAN
     Indication: PULMONARY ARTERIAL HYPERTENSION
     Route: 048
     Dates: start: 20081002, end: 20101001
  8. PREVACID [Concomitant]
     Active Substance: LANSOPRAZOLE
  9. PREDNISONE. [Concomitant]
     Active Substance: PREDNISONE
  10. CELLCEPT [Concomitant]
     Active Substance: MYCOPHENOLATE MOFETIL\MYCOPHENOLATE MOFETIL HYDROCHLORIDE
  11. MYCOPHENOLATE [Concomitant]
     Active Substance: MYCOPHENOLIC ACID
  12. FOLTX [Concomitant]
     Active Substance: CYANOCOBALAMIN CO-57\FOLIC ACID\PYRIDOXINE HYDROCHLORIDE
  13. VIVELLE [Concomitant]
     Active Substance: ESTRADIOL
  14. KLOR-CON [Concomitant]
     Active Substance: POTASSIUM CHLORIDE
  15. GLUCOSAMINE [Concomitant]
     Active Substance: GLUCOSAMINE
  16. NORCO [Concomitant]
     Active Substance: ACETAMINOPHEN\HYDROCODONE BITARTRATE
  17. METHOTREXATE [Concomitant]
     Active Substance: METHOTREXATE
  18. SUPER B-50 COMPLEX [Concomitant]
  19. VITAMIN D [Concomitant]
     Active Substance: CHOLECALCIFEROL
  20. ZETIA [Concomitant]
     Active Substance: EZETIMIBE
  21. TRIGLIDE [Concomitant]
     Active Substance: FENOFIBRATE
  22. FOLIC ACID. [Concomitant]
     Active Substance: FOLIC ACID
  23. FUROSEMIDE. [Concomitant]
     Active Substance: FUROSEMIDE
  24. SINGULAIR [Concomitant]
     Active Substance: MONTELUKAST SODIUM
  25. GAVISCON [Concomitant]
     Active Substance: ALUMINUM HYDROXIDE\MAGNESIUM CARBONATE
  26. CRESTOR [Concomitant]
     Active Substance: ROSUVASTATIN CALCIUM
  27. SYNTHROID [Concomitant]
     Active Substance: LEVOTHYROXINE SODIUM
  28. ZOLOFT [Concomitant]
     Active Substance: SERTRALINE HYDROCHLORIDE
  29. CLARINEX [Concomitant]
     Active Substance: DESLORATADINE
  30. CENTRUM SILVER [Concomitant]
     Active Substance: VITAMINS

REACTIONS (1)
  - Anaemia [Unknown]
